FAERS Safety Report 18490215 (Version 2)
Quarter: 2020Q4

REPORT INFORMATION
  Report Type: Report from Study
  Country: IT (occurrence: IT)
  Receive Date: 20201111
  Receipt Date: 20201201
  Transmission Date: 20210114
  Serious: Yes (Other)
  Sender: FDA-Public Use
  Company Number: IT-TEVA-2020-IT-1846939

PATIENT
  Age: 61 Year
  Sex: Male
  Weight: 73 kg

DRUGS (11)
  1. PALEXIA [Concomitant]
     Active Substance: TAPENTADOL HYDROCHLORIDE
     Dosage: 25 MG
     Route: 048
  2. ZOFRAN [Concomitant]
     Active Substance: ONDANSETRON HYDROCHLORIDE
     Dosage: 16 MG
     Route: 048
     Dates: start: 20200902, end: 20200905
  3. ONDANSETRON HYDROCHLORIDE. [Concomitant]
     Active Substance: ONDANSETRON HYDROCHLORIDE
     Dosage: 8 MG
     Route: 042
     Dates: start: 20200902, end: 20200902
  4. APREPITANT. [Concomitant]
     Active Substance: APREPITANT
     Dates: start: 20200902, end: 20200902
  5. ALIMTA [Suspect]
     Active Substance: PEMETREXED DISODIUM
     Indication: LUNG ADENOCARCINOMA
     Dosage: 935 MG
     Route: 042
     Dates: start: 20200902, end: 20200902
  6. ACETAMINOPHEN AND CODEINE [Concomitant]
     Active Substance: ACETAMINOPHEN\CODEINE PHOSPHATE
     Dosage: 500 MG
     Route: 048
  7. CIPROFLOXACIN. [Suspect]
     Active Substance: CIPROFLOXACIN
     Indication: SKIN LESION
     Dosage: 1500 MG
     Route: 048
     Dates: start: 20200904, end: 20200908
  8. PANTORC [Concomitant]
     Active Substance: PANTOPRAZOLE SODIUM
     Dosage: 40 MG
     Route: 048
  9. DELTACORTENE 25 MG COMPRESSE [Concomitant]
     Active Substance: PREDNISONE
     Dosage: 50 MG
     Route: 048
     Dates: start: 20200901, end: 20200901
  10. CARBOPLATIN. [Suspect]
     Active Substance: CARBOPLATIN
     Indication: LUNG ADENOCARCINOMA
     Dosage: 500 MG
     Route: 042
     Dates: start: 20200902, end: 20200902
  11. DEXAMETHASONE. [Concomitant]
     Active Substance: DEXAMETHASONE
     Dosage: 4 MG
     Route: 042
     Dates: start: 20200902, end: 20200902

REACTIONS (5)
  - Thrombocytopenia [Recovered/Resolved]
  - Rash macular [Recovered/Resolved]
  - Malaise [Recovered/Resolved]
  - Pruritus [Recovered/Resolved]
  - Nausea [Recovered/Resolved]

NARRATIVE: CASE EVENT DATE: 20200904
